FAERS Safety Report 6131205-X (Version None)
Quarter: 2009Q1

REPORT INFORMATION
  Report Type: 
  Country: None (occurrence: None)
  Receive Date: 20090325
  Receipt Date: 20090317
  Transmission Date: 20090719
  Serious: Yes (Hospitalization)
  Sender: FDA-Public Use
  Company Number: US-ELI_LILLY_AND_COMPANY-US200903004156

PATIENT
  Age: 62 Year
  Sex: Female

DRUGS (2)
  1. HUMALOG [Suspect]
     Dosage: UNK, AS NEEDED
  2. LANTUS [Concomitant]
     Indication: TYPE 2 DIABETES MELLITUS
     Dosage: UNK, AS NEEDED

REACTIONS (2)
  - BLOOD CHOLESTEROL ABNORMAL [None]
  - BLOOD GLUCOSE INCREASED [None]
